FAERS Safety Report 25279463 (Version 1)
Quarter: 2025Q2

REPORT INFORMATION
  Report Type: Spontaneous
  Country: FR (occurrence: FR)
  Receive Date: 20250507
  Receipt Date: 20250507
  Transmission Date: 20250716
  Serious: No
  Sender: SANDOZ
  Company Number: FR-SANDOZ-SDZ2025FR028404

PATIENT
  Age: 8 Year

DRUGS (1)
  1. OMNITROPE [Suspect]
     Active Substance: SOMATROPIN
     Indication: Growth retardation
     Dosage: (0.9 DAILY)TREATED WITH  FOR 2 YEARS
     Route: 065

REACTIONS (4)
  - Product dose omission issue [Unknown]
  - Device malfunction [Unknown]
  - Device delivery system issue [Unknown]
  - Device occlusion [Unknown]
